FAERS Safety Report 12812535 (Version 1)
Quarter: 2016Q4

REPORT INFORMATION
  Report Type: Spontaneous
  Country: JP (occurrence: JP)
  Receive Date: 20161005
  Receipt Date: 20161005
  Transmission Date: 20170207
  Serious: Yes (Other)
  Sender: FDA-Public Use
  Company Number: JP-UCBSA-2016037991

PATIENT

DRUGS (1)
  1. XYZAL [Suspect]
     Active Substance: LEVOCETIRIZINE DIHYDROCHLORIDE
     Indication: PRODUCT USED FOR UNKNOWN INDICATION
     Dosage: NINE TABLETS IN NINE DAYS
     Route: 048
     Dates: start: 201606, end: 2016

REACTIONS (7)
  - Somnolence [Not Recovered/Not Resolved]
  - Erythema [Not Recovered/Not Resolved]
  - Erythema multiforme [Not Recovered/Not Resolved]
  - Drug prescribing error [Unknown]
  - Dizziness [Not Recovered/Not Resolved]
  - Movement disorder [Not Recovered/Not Resolved]
  - Contraindication to medical treatment [Unknown]

NARRATIVE: CASE EVENT DATE: 2016
